FAERS Safety Report 14369997 (Version 2)
Quarter: 2018Q1

REPORT INFORMATION
  Report Type: Report from Study
  Country: US (occurrence: US)
  Receive Date: 20180110
  Receipt Date: 20180207
  Transmission Date: 20180509
  Serious: No
  Sender: FDA-Public Use
  Company Number: US-TAKEDA-2018TUS000232

PATIENT
  Sex: Female
  Weight: 70.3 kg

DRUGS (2)
  1. VEDOLIZUMAB [Suspect]
     Active Substance: VEDOLIZUMAB
     Indication: COLITIS ULCERATIVE
     Dosage: 300 MG, UNK
     Route: 042
     Dates: start: 201708, end: 201711
  2. APRISO [Concomitant]
     Active Substance: MESALAMINE
     Indication: COLITIS ULCERATIVE
     Dosage: UNK UNK, QD

REACTIONS (8)
  - Arthralgia [Not Recovered/Not Resolved]
  - Weight increased [Unknown]
  - Nasopharyngitis [Not Recovered/Not Resolved]
  - Sinusitis [Recovered/Resolved]
  - Pharyngeal paraesthesia [Recovered/Resolved]
  - Urticaria [Recovered/Resolved]
  - Pain in extremity [Not Recovered/Not Resolved]
  - Headache [Recovered/Resolved]

NARRATIVE: CASE EVENT DATE: 2017
